FAERS Safety Report 19556802 (Version 1)
Quarter: 2021Q3

REPORT INFORMATION
  Report Type: Report from Study
  Country: CR (occurrence: CR)
  Receive Date: 20210714
  Receipt Date: 20210714
  Transmission Date: 20211014
  Serious: Yes (Other)
  Sender: FDA-Public Use
  Company Number: NVSC2021CR153138

PATIENT
  Age: 57 Year
  Sex: Male

DRUGS (2)
  1. VYMADA [Suspect]
     Active Substance: SACUBITRIL\VALSARTAN
     Indication: PRODUCT USED FOR UNKNOWN INDICATION
     Dosage: 50 MG, STARTED 1 YEAR AND 7 MONTHS AGO
     Route: 065
  2. VYMADA [Suspect]
     Active Substance: SACUBITRIL\VALSARTAN
     Dosage: 100 MG, APPROXIMTELY 1 MONTH AND A HALF AGO
     Route: 065

REACTIONS (2)
  - Bacterial infection [Unknown]
  - Inappropriate schedule of product administration [Unknown]
